FAERS Safety Report 6037011-9 (Version None)
Quarter: 2009Q1

REPORT INFORMATION
  Report Type: 
  Country: None (occurrence: None)
  Receive Date: 20090114
  Receipt Date: 20090108
  Transmission Date: 20090719
  Serious: Yes (Hospitalization, Other)
  Sender: FDA-Public Use
  Company Number: US-ABBOTT-09P-163-0496500-00

PATIENT
  Sex: Female

DRUGS (3)
  1. HUMIRA [Suspect]
     Indication: ANKYLOSING SPONDYLITIS
     Route: 058
     Dates: start: 20080901, end: 20081001
  2. HUMIRA [Suspect]
     Route: 058
     Dates: start: 20081219
  3. OTHER UNKNOWN MEDICATIONS [Concomitant]
     Indication: ANKYLOSING SPONDYLITIS

REACTIONS (16)
  - ABASIA [None]
  - ARTHRALGIA [None]
  - CELLULITIS [None]
  - DYSPNOEA [None]
  - HEADACHE [None]
  - HYPOAESTHESIA [None]
  - INJECTION SITE ERYTHEMA [None]
  - INJECTION SITE PRURITUS [None]
  - LOCALISED INFECTION [None]
  - MUSCLE SPASMS [None]
  - PAIN IN EXTREMITY [None]
  - PHARYNGEAL OEDEMA [None]
  - SENSATION OF HEAVINESS [None]
  - SKIN DISCOLOURATION [None]
  - TINEA PEDIS [None]
  - URTICARIA [None]
